FAERS Safety Report 8561926-0 (Version None)
Quarter: 2012Q3

REPORT INFORMATION
  Report Type: 
  Country: None (occurrence: None)
  Receive Date: 20120802
  Receipt Date: 20111115
  Transmission Date: 20120928
  Serious: Yes (Hospitalization)
  Sender: FDA-Public Use
  Company Number: CA-ABBOTT-11P-028-0874355-01

PATIENT
  Sex: Male

DRUGS (15)
  1. HUMIRA [Suspect]
     Indication: PSORIASIS
     Route: 058
     Dates: start: 20040101
  2. TYLENOL W/ CODEINE NO. 3 [Concomitant]
     Indication: BACK PAIN
  3. AMLODIPINE [Concomitant]
     Indication: HYPERTENSION
     Dates: start: 20090101
  4. HUMIRA [Suspect]
     Route: 058
     Dates: start: 20110328, end: 20110523
  5. HUMIRA [Suspect]
     Route: 058
     Dates: start: 20110628
  6. APO-AMILZIDE [Concomitant]
     Indication: HYPERTENSION
     Dosage: 50/5
     Dates: start: 20090101
  7. HYDROCHLOROTHIAZIDE [Concomitant]
     Indication: HYPERTENSION
     Dates: start: 20090101
  8. CRESTOR [Concomitant]
     Indication: PERIPHERAL VASCULAR DISORDER
     Dates: start: 20100101
  9. TYLENOL W/ CODEINE NO. 3 [Concomitant]
     Indication: ARTHRITIS
     Dosage: 1-2 TABLETS
     Route: 048
  10. LORAZEPAM [Concomitant]
     Indication: DEPRESSION
     Dates: start: 19910101
  11. GLYBURIDE [Concomitant]
     Indication: TYPE 2 DIABETES MELLITUS
     Dates: start: 19960101
  12. MELOXICAM [Concomitant]
     Indication: ARTHRITIS
     Dates: start: 20000101
  13. TYLENOL W/ CODEINE NO. 3 [Concomitant]
     Indication: PAIN
  14. PERINDOPRIL ERBUMINE [Concomitant]
     Indication: PERIPHERAL VASCULAR DISORDER
     Dates: start: 20100101
  15. METFORMIN HYDROCHLORIDE [Concomitant]
     Indication: TYPE 2 DIABETES MELLITUS
     Dates: start: 19860101

REACTIONS (1)
  - INTERVERTEBRAL DISC DEGENERATION [None]
